FAERS Safety Report 4785043-0 (Version None)
Quarter: 2005Q3

REPORT INFORMATION
  Report Type: 
  Country: None (occurrence: None)
  Receive Date: 20050930
  Receipt Date: 20050920
  Transmission Date: 20060218
  Serious: Yes (Other)
  Sender: FDA-Public Use
  Company Number: US-JNJFOC-20050905094

PATIENT
  Sex: Female
  Weight: 51.71 kg

DRUGS (5)
  1. ORTHO EVRA [Suspect]
     Indication: CONTRACEPTION
     Route: 062
     Dates: start: 20050918
  2. MISOPROSTOL [Suspect]
     Dates: start: 20050920
  3. MISOPROSTOL [Suspect]
     Dates: start: 20050920
  4. DARVOCET-N 100 [Suspect]
     Dates: start: 20050919
  5. DARVOCET-N 100 [Suspect]
     Dates: start: 20050919

REACTIONS (7)
  - DIZZINESS [None]
  - DYSPNOEA [None]
  - EYE IRRITATION [None]
  - GAIT DISTURBANCE [None]
  - NERVOUSNESS [None]
  - STUPOR [None]
  - UTERINE HAEMORRHAGE [None]
